FAERS Safety Report 7759115-2 (Version None)
Quarter: 2011Q3

REPORT INFORMATION
  Report Type: 
  Country: None (occurrence: None)
  Receive Date: 20110919
  Receipt Date: 20110912
  Transmission Date: 20111222
  Serious: Yes (Other)
  Sender: FDA-Public Use
  Company Number: PHHY2009CA46145

PATIENT
  Sex: Female

DRUGS (11)
  1. ZOLEDRONOC ACID [Suspect]
     Indication: OSTEOPOROSIS
     Route: 042
     Dates: start: 20091002
  2. HYDROXYCHLOROQUINE SULFATE [Concomitant]
     Dosage: 200 MG, BID
  3. ZYTRAM [Concomitant]
  4. LEVOTHYROXINE SODIUM [Concomitant]
  5. ORENCIA [Concomitant]
     Dosage: 500 MG, UNK
     Route: 042
  6. CLONAZEPAM [Concomitant]
  7. ESTRADIOL [Concomitant]
  8. REMERON [Concomitant]
  9. PROGESTERONE [Concomitant]
  10. PREDNISONE [Concomitant]
     Dosage: 2 MG, QD
  11. ZOPICLONE [Concomitant]

REACTIONS (1)
  - NO ADVERSE EVENT [None]
